FAERS Safety Report 6976497-X (Version None)
Quarter: 2010Q3

REPORT INFORMATION
  Report Type: 
  Country: None (occurrence: None)
  Receive Date: 20100910
  Receipt Date: 20100831
  Transmission Date: 20110219
  Serious: Yes (Other)
  Sender: FDA-Public Use
  Company Number: GB-PFIZER INC-2010109498

PATIENT
  Age: 80 Year
  Sex: Female

DRUGS (1)
  1. XALATAN [Suspect]
     Indication: GLAUCOMA
     Dosage: ONE DROP IN EACH EYE AT NIGHT
     Route: 047

REACTIONS (4)
  - CATARACT [None]
  - EYE PRURITUS [None]
  - FEELING HOT [None]
  - SLEEP DISORDER [None]
